FAERS Safety Report 17557539 (Version 1)
Quarter: 2020Q1

REPORT INFORMATION
  Report Type: Spontaneous
  Country: CH (occurrence: CH)
  Receive Date: 20200318
  Receipt Date: 20200318
  Transmission Date: 20200409
  Serious: Yes (Hospitalization)
  Sender: FDA-Public Use
  Company Number: CH-JNJFOC-20200322821

PATIENT
  Age: 84 Year
  Sex: Male

DRUGS (13)
  1. BILOL [Suspect]
     Active Substance: BISOPROLOL
     Dosage: 10 MG, QD
     Route: 048
     Dates: end: 202001
  2. RIOPAN [Concomitant]
     Dates: start: 202001, end: 202002
  3. FOLIC ACID. [Concomitant]
     Active Substance: FOLIC ACID
     Dates: start: 202001, end: 20200220
  4. RIVAROXABAN [Suspect]
     Active Substance: RIVAROXABAN
     Indication: PRODUCT USED FOR UNKNOWN INDICATION
     Dosage: 15 MG, UNK
     Route: 048
     Dates: end: 202001
  5. ATORVASTATIN [Concomitant]
     Active Substance: ATORVASTATIN
     Dates: start: 202002
  6. CEFTRIAXONE. [Concomitant]
     Active Substance: CEFTRIAXONE
     Dates: start: 202001, end: 20200114
  7. RIVOTRIL [Concomitant]
     Active Substance: CLONAZEPAM
  8. ASPIRIN CARDIO [Concomitant]
     Active Substance: ASPIRIN
     Dates: start: 202001, end: 202002
  9. ESOMEPRAZOLE. [Suspect]
     Active Substance: ESOMEPRAZOLE MAGNESIUM
     Dosage: 40 MG, QD
     Route: 048
     Dates: end: 202002
  10. CONCOR [Suspect]
     Active Substance: BISOPROLOL FUMARATE
     Dosage: 5 MG, QD
     Route: 048
     Dates: start: 202001, end: 202002
  11. LEVETIRACETAM. [Concomitant]
     Active Substance: LEVETIRACETAM
     Dates: start: 202002
  12. LUVIT D3 [Concomitant]
     Active Substance: CHOLECALCIFEROL
     Dates: start: 202001, end: 202002
  13. CLOPIDOGREL [Concomitant]
     Active Substance: CLOPIDOGREL BISULFATE
     Dates: start: 202002

REACTIONS (1)
  - Pyrexia [Recovered/Resolved]

NARRATIVE: CASE EVENT DATE: 20200104
